FAERS Safety Report 25966297 (Version 1)
Quarter: 2025Q4

REPORT INFORMATION
  Report Type: Report from Study
  Country: US (occurrence: US)
  Receive Date: 20251028
  Receipt Date: 20251028
  Transmission Date: 20260117
  Serious: Yes (Other)
  Sender: ABBVIE
  Company Number: US-ABBVIE-6515774

PATIENT
  Age: 49 Year
  Sex: Male

DRUGS (1)
  1. RINVOQ [Suspect]
     Active Substance: UPADACITINIB
     Indication: Product used for unknown indication
     Route: 048
     Dates: start: 20220516

REACTIONS (6)
  - Neuropathy peripheral [Not Recovered/Not Resolved]
  - Cardiac disorder [Unknown]
  - Localised infection [Unknown]
  - Frostbite [Unknown]
  - Blood glucose abnormal [Recovered/Resolved]
  - Vascular device infection [Recovered/Resolved]

NARRATIVE: CASE EVENT DATE: 20240101
